FAERS Safety Report 7518659-9 (Version None)
Quarter: 2011Q2

REPORT INFORMATION
  Report Type: 
  Country: None (occurrence: None)
  Receive Date: 20110602
  Receipt Date: 20110524
  Transmission Date: 20111010
  Serious: Yes (Other)
  Sender: FDA-Public Use
  Company Number: US-BAYER-2011-046639

PATIENT
  Sex: Female

DRUGS (1)
  1. ONE A DAY WOMEN'S PRENATAL [Suspect]
     Route: 048

REACTIONS (1)
  - HAEMATOCHEZIA [None]
